FAERS Safety Report 23064966 (Version 3)
Quarter: 2023Q4

REPORT INFORMATION
  Report Type: Report from Study
  Country: MC (occurrence: FR)
  Receive Date: 20231013
  Receipt Date: 20231128
  Transmission Date: 20240109
  Serious: Yes (Hospitalization)
  Sender: FDA-Public Use
  Company Number: MC-002147023-NVSC2023FR216405

PATIENT
  Sex: Male
  Weight: 59 kg

DRUGS (4)
  1. PLUVICTO [Suspect]
     Active Substance: LUTETIUM LU-177 VIPIVOTIDE TETRAXETAN
     Indication: Hormone-refractory prostate cancer
     Dosage: 6805 MBQ, ONCE (1ST CYCLE)
     Route: 042
     Dates: start: 20230619, end: 20230619
  2. PLUVICTO [Suspect]
     Active Substance: LUTETIUM LU-177 VIPIVOTIDE TETRAXETAN
     Dosage: 6893 MBQ, ONCE (2ND CYCLE)
     Route: 042
     Dates: start: 20230731, end: 20230731
  3. PLUVICTO [Suspect]
     Active Substance: LUTETIUM LU-177 VIPIVOTIDE TETRAXETAN
     Dosage: 6814 MBQ, ONCE (3RD CYCLE)
     Route: 042
     Dates: start: 20230911, end: 20230911
  4. GOSERELIN [Concomitant]
     Active Substance: GOSERELIN
     Indication: Hormone-refractory prostate cancer
     Dosage: 10 (UNIT NOT SPECIFIED)
     Route: 065
     Dates: end: 20230711

REACTIONS (2)
  - Hyperamylasaemia [Recovering/Resolving]
  - Blood creatine increased [Unknown]

NARRATIVE: CASE EVENT DATE: 20231002
